FAERS Safety Report 9156788 (Version 1)
Quarter: 2013Q1

REPORT INFORMATION
  Report Type: Spontaneous
  Country: PT (occurrence: None)
  Receive Date: 20130211
  Receipt Date: 20130211
  Transmission Date: 20140127
  Serious: Yes (Hospitalization)
  Sender: FDA-Public Use
  Company Number: 2013MP100044

PATIENT
  Sex: Male

DRUGS (3)
  1. BRENTUXIMAB VEDOTIN (BRENTUXIMAB VEDOTIN) INJECTION [Suspect]
     Indication: HODGKIN^S DISEASE
     Route: 042
     Dates: start: 20120913, end: 20120913
  2. OMEPRAZOLE (OMEPRAZOLE) [Concomitant]
  3. ACYCLOVIR (ACYCLOVIR) [Concomitant]

REACTIONS (1)
  - Lung infiltration [None]
